FAERS Safety Report 12753127 (Version 1)
Quarter: 2016Q3

REPORT INFORMATION
  Report Type: Spontaneous
  Country: US (occurrence: US)
  Receive Date: 20160916
  Receipt Date: 20160916
  Transmission Date: 20161109
  Serious: Yes (Death)
  Sender: FDA-Public Use
  Company Number: US-ROCHE-1831174

PATIENT
  Age: 78 Year
  Sex: Female
  Weight: 56.9 kg

DRUGS (1)
  1. ACTIVASE [Suspect]
     Active Substance: ALTEPLASE
     Indication: CEREBROVASCULAR ACCIDENT
     Route: 042
     Dates: start: 20160901, end: 20160901

REACTIONS (2)
  - Haemorrhage intracranial [Fatal]
  - Agitation [Fatal]

NARRATIVE: CASE EVENT DATE: 20160902
